FAERS Safety Report 4893256-2 (Version None)
Quarter: 2006Q1

REPORT INFORMATION
  Report Type: 
  Country: None (occurrence: None)
  Receive Date: 20060127
  Receipt Date: 20060119
  Transmission Date: 20060701
  Serious: Yes (Hospitalization)
  Sender: FDA-Public Use
  Company Number: US-JNJFOC-20051001744

PATIENT
  Sex: Female
  Weight: 76.2 kg

DRUGS (19)
  1. INFLIXIMAB [Suspect]
     Indication: RHEUMATOID ARTHRITIS
     Route: 042
  2. AMBIEN [Concomitant]
  3. COREG [Concomitant]
  4. NEURONTIN [Concomitant]
  5. COUMADIN [Concomitant]
  6. COLACE [Concomitant]
  7. CORDARONE [Concomitant]
  8. FOLIC ACID [Concomitant]
  9. LASIX [Concomitant]
  10. PREVACID [Concomitant]
  11. TOPROL [Concomitant]
  12. MULTI-VITAMIN [Concomitant]
  13. MULTI-VITAMIN [Concomitant]
  14. MULTI-VITAMIN [Concomitant]
  15. MULTI-VITAMIN [Concomitant]
  16. MULTI-VITAMIN [Concomitant]
  17. MULTI-VITAMIN [Concomitant]
  18. MULTI-VITAMIN [Concomitant]
  19. MULTI-VITAMIN [Concomitant]

REACTIONS (3)
  - AORTIC VALVE STENOSIS [None]
  - ATRIAL FIBRILLATION [None]
  - BRADYCARDIA [None]
